FAERS Safety Report 6624872-5 (Version None)
Quarter: 2010Q1

REPORT INFORMATION
  Report Type: 
  Country: None (occurrence: None)
  Receive Date: 20100223
  Receipt Date: 20091113
  Transmission Date: 20100710
  Serious: No
  Sender: FDA-Public Use
  Company Number: 8054849

PATIENT
  Sex: Female

DRUGS (4)
  1. CERTOLIZUMAB PEGOL (UCB, INC) [Suspect]
     Indication: CROHN'S DISEASE
     Dosage: 400 MG, MONTHLY SUBCUTANEOUS
     Route: 058
     Dates: start: 20080701
  2. CARDIZEM [Concomitant]
  3. LISINOPRIL [Concomitant]
  4. ASACOL [Concomitant]

REACTIONS (1)
  - TACHYCARDIA [None]
